FAERS Safety Report 18666750 (Version 1)
Quarter: 2020Q4

REPORT INFORMATION
  Report Type: Spontaneous
  Country: PL (occurrence: PL)
  Receive Date: 20201227
  Receipt Date: 20201227
  Transmission Date: 20210114
  Serious: Yes (Death)
  Sender: FDA-Public Use
  Company Number: PL-JNJFOC-20201232290

PATIENT
  Age: 69 Year
  Sex: Male

DRUGS (8)
  1. PARACETAMOL [Suspect]
     Active Substance: ACETAMINOPHEN
     Indication: PRODUCT USED FOR UNKNOWN INDICATION
     Route: 065
  2. DENOSUMAB [Suspect]
     Active Substance: DENOSUMAB
     Indication: PRODUCT USED FOR UNKNOWN INDICATION
     Route: 065
  3. IBUPROFEN. [Concomitant]
     Active Substance: IBUPROFEN
     Indication: ANALGESIC THERAPY
     Route: 065
  4. ITOPRIDE [Concomitant]
     Active Substance: ITOPRIDE
     Indication: CONSTIPATION
     Route: 065
  5. PREGABALIN. [Suspect]
     Active Substance: PREGABALIN
     Indication: NEURALGIA
     Route: 065
  6. VELLOFENT [Concomitant]
     Indication: PRODUCT USED FOR UNKNOWN INDICATION
     Route: 065
  7. MACROGOL [Concomitant]
     Active Substance: POLYETHYLENE GLYCOLS
     Indication: CONSTIPATION
     Dosage: UNK, PER DAY
     Route: 065
  8. BUPRENORPHINE. [Suspect]
     Active Substance: BUPRENORPHINE
     Indication: PRODUCT USED FOR UNKNOWN INDICATION
     Route: 062

REACTIONS (3)
  - Hypocalcaemia [Fatal]
  - Constipation [Fatal]
  - Drug ineffective [Fatal]
